FAERS Safety Report 11502564 (Version 1)
Quarter: 2015Q3

REPORT INFORMATION
  Report Type: Spontaneous
  Country: US (occurrence: US)
  Receive Date: 20150914
  Receipt Date: 20150914
  Transmission Date: 20151125
  Serious: No
  Sender: FDA-Public Use
  Company Number: US-ASTELLAS-2015US021777

PATIENT
  Sex: Male

DRUGS (1)
  1. XTANDI [Suspect]
     Active Substance: ENZALUTAMIDE
     Indication: PROSTATE CANCER METASTATIC
     Dosage: 160 MG (4 CAPS), ONCE DAILY
     Route: 048
     Dates: start: 201506, end: 201506

REACTIONS (2)
  - Haematochezia [Recovered/Resolved]
  - Peripheral swelling [Recovered/Resolved]
